FAERS Safety Report 20120952 (Version 15)
Quarter: 2023Q4

REPORT INFORMATION
  Report Type: Spontaneous
  Country: CA (occurrence: CA)
  Receive Date: 20211127
  Receipt Date: 20231114
  Transmission Date: 20240109
  Serious: Yes (Other)
  Sender: FDA-Public Use
  Company Number: CA-CELLTRION INC.-2021CA016085

PATIENT

DRUGS (17)
  1. INFLECTRA [Suspect]
     Active Substance: INFLIXIMAB-DYYB
     Indication: Crohn^s disease
     Dosage: 5MG/KG, AT 0, 2, 6 WEEK THEN EVERY 8 WEEKS
     Route: 042
     Dates: start: 20211105
  2. INFLECTRA [Suspect]
     Active Substance: INFLIXIMAB-DYYB
     Dosage: 5 MG/KG, AT 0, 2, 6 WEEKS
     Route: 042
     Dates: start: 20211105, end: 20211217
  3. INFLECTRA [Suspect]
     Active Substance: INFLIXIMAB-DYYB
     Dosage: 5MG/KG, AT 0, 2, 6 WEEK THEN EVERY 8 WEEKS
     Route: 042
     Dates: start: 20211117
  4. INFLECTRA [Suspect]
     Active Substance: INFLIXIMAB-DYYB
     Dosage: 5MG/KG, AT 0, 2, 6 WEEK THEN EVERY 8 WEEKS
     Route: 042
     Dates: start: 20211217
  5. INFLECTRA [Suspect]
     Active Substance: INFLIXIMAB-DYYB
     Dosage: 5MG/KG, AT 0, 2, 6 WEEK THEN EVERY 8 WEEKS
     Route: 042
     Dates: start: 20220217
  6. INFLECTRA [Suspect]
     Active Substance: INFLIXIMAB-DYYB
     Dosage: 5 MG/KG EVERY 8 WEEK
     Route: 042
     Dates: start: 20220217
  7. INFLECTRA [Suspect]
     Active Substance: INFLIXIMAB-DYYB
     Dosage: 5MG/KG, EVERY 8 WEEK
     Route: 042
     Dates: start: 20220802
  8. INFLECTRA [Suspect]
     Active Substance: INFLIXIMAB-DYYB
     Dosage: 5MG/KG, EVERY 8 WEEK
     Route: 042
     Dates: start: 20220926
  9. INFLECTRA [Suspect]
     Active Substance: INFLIXIMAB-DYYB
     Dosage: 5MG/KG, EVERY 8 WEEK
     Route: 042
     Dates: start: 20221121
  10. INFLECTRA [Suspect]
     Active Substance: INFLIXIMAB-DYYB
     Dosage: 5MG/KG, EVERY 8 WEEK
     Route: 042
     Dates: start: 20230116
  11. INFLECTRA [Suspect]
     Active Substance: INFLIXIMAB-DYYB
     Dosage: 270 MG AFTER 8 WEEKS , SUPPOSE TO RECEIVE 370MG
     Route: 042
     Dates: start: 20230313
  12. INFLECTRA [Suspect]
     Active Substance: INFLIXIMAB-DYYB
     Dosage: 360 MG (5 MG/KG) EVERY 8 WEEKS
     Route: 042
     Dates: start: 20230508
  13. INFLECTRA [Suspect]
     Active Substance: INFLIXIMAB-DYYB
     Dosage: 355 MG, 9 WEEKS AND 4 DAYS (EVERY 8 WEEKS)
     Route: 042
     Dates: start: 20230714
  14. INFLECTRA [Suspect]
     Active Substance: INFLIXIMAB-DYYB
     Dosage: 355 MG AFTER 8 WEEK (PRESCRIBED 5MG/KG, EVERY 8 WEEK)
     Route: 042
     Dates: start: 20230911
  15. INFLECTRA [Suspect]
     Active Substance: INFLIXIMAB-DYYB
     Dosage: 350 MG 8 WEEKS
     Route: 042
     Dates: start: 20231106
  16. IMURAN [Concomitant]
     Active Substance: AZATHIOPRINE
     Dosage: 1 DF DOSAGE INFO IS NOT AVAILABLE
     Route: 065
  17. PENTASA [Concomitant]
     Active Substance: MESALAMINE
     Dosage: 1 DF, DOSAGE INFO IS NOT AVAILABLE
     Route: 065

REACTIONS (13)
  - Pyoderma gangrenosum [Recovered/Resolved]
  - Uveitis [Recovered/Resolved]
  - Condition aggravated [Recovering/Resolving]
  - Arthralgia [Not Recovered/Not Resolved]
  - Aphthous ulcer [Recovered/Resolved]
  - Fistula [Recovered/Resolved]
  - Anal fissure [Recovered/Resolved]
  - Blood pressure fluctuation [Unknown]
  - Accidental underdose [Unknown]
  - Aphthous ulcer [Not Recovered/Not Resolved]
  - Abscess [Not Recovered/Not Resolved]
  - Furuncle [Unknown]
  - Inappropriate schedule of product administration [Unknown]

NARRATIVE: CASE EVENT DATE: 20211117
